FAERS Safety Report 11032271 (Version 1)
Quarter: 2015Q2

REPORT INFORMATION
  Report Type: Spontaneous
  Country: US (occurrence: US)
  Receive Date: 20150415
  Receipt Date: 20150415
  Transmission Date: 20150821
  Serious: Yes (Other)
  Sender: FDA-Public Use
  Company Number: US-GLAXOSMITHKLINE-US2015047775

PATIENT
  Age: 74 Year
  Sex: Female

DRUGS (2)
  1. FLOVENT [Suspect]
     Active Substance: FLUTICASONE PROPIONATE
     Dosage: 2 PUFF(S), QD
     Route: 055
  2. FLOVENT [Suspect]
     Active Substance: FLUTICASONE PROPIONATE
     Indication: ASTHMA
     Dosage: UNK, BID
     Route: 055

REACTIONS (5)
  - Malaise [Unknown]
  - Cataract operation [Recovering/Resolving]
  - Dizziness [Recovered/Resolved]
  - Influenza [Unknown]
  - Bronchitis [Unknown]

NARRATIVE: CASE EVENT DATE: 20150407
